FAERS Safety Report 4638285-9 (Version None)
Quarter: 2005Q2

REPORT INFORMATION
  Report Type: 
  Country: None (occurrence: None)
  Receive Date: 20050415
  Receipt Date: 20050411
  Transmission Date: 20051028
  Serious: Yes (Hospitalization, Other)
  Sender: FDA-Public Use
  Company Number: 2005-04-0382

PATIENT
  Age: 57 Year
  Sex: Female

DRUGS (3)
  1. GENTAMICIN [Suspect]
     Indication: INFECTION
     Dosage: 4 MG/KG QD INTRAVENOUS
     Route: 042
  2. CEPHALOTHIN [Concomitant]
  3. METRONIDAZOLE [Concomitant]

REACTIONS (13)
  - ANOREXIA [None]
  - ATRIOVENTRICULAR BLOCK FIRST DEGREE [None]
  - DEHYDRATION [None]
  - DIZZINESS [None]
  - HYPERCALCIURIA [None]
  - HYPOACUSIS [None]
  - HYPOCALCAEMIA [None]
  - HYPOKALAEMIA [None]
  - HYPOMAGNESAEMIA [None]
  - METABOLIC ALKALOSIS [None]
  - MUSCLE SPASMS [None]
  - PSEUDO-BARTTER SYNDROME [None]
  - TETANY [None]
